FAERS Safety Report 8204822-0 (Version None)
Quarter: 2012Q1

REPORT INFORMATION
  Report Type: 
  Country: None (occurrence: None)
  Receive Date: 20120313
  Receipt Date: 20120302
  Transmission Date: 20120608
  Serious: Yes (Other)
  Sender: FDA-Public Use
  Company Number: US-JNJFOC-20120208021

PATIENT
  Sex: Female
  Weight: 65.77 kg

DRUGS (3)
  1. REMICADE [Suspect]
     Indication: RHEUMATOID ARTHRITIS
     Dosage: DOSE: 4 VIALS
     Route: 042
  2. CELEBREX [Suspect]
     Indication: RHEUMATOID ARTHRITIS
     Route: 048
  3. OSCAL NOS [Concomitant]
     Indication: ARTHRITIS
     Route: 048

REACTIONS (4)
  - OSTEOARTHRITIS [None]
  - URTICARIA [None]
  - RASH MACULAR [None]
  - SINUSITIS [None]
